FAERS Safety Report 9728347 (Version 1)
Quarter: 2013Q4

REPORT INFORMATION
  Report Type: Report from Study
  Country: BR (occurrence: BR)
  Receive Date: 20131204
  Receipt Date: 20131204
  Transmission Date: 20140711
  Serious: Yes (Death)
  Sender: FDA-Public Use
  Company Number: PHHY2013BR140870

PATIENT
  Sex: Female

DRUGS (3)
  1. ACLASTA [Suspect]
     Indication: OSTEOPOROSIS
     Dosage: 5 MG, UNK
     Route: 042
     Dates: start: 2012
  2. INSULIN [Concomitant]
     Dosage: UNK UKN, UNK
     Dates: start: 2003
  3. PROPANOLOL [Concomitant]
     Dosage: UNK UKN, UNK
     Dates: start: 2000

REACTIONS (1)
  - Blood pressure inadequately controlled [Fatal]
